FAERS Safety Report 16162031 (Version 3)
Quarter: 2020Q3

REPORT INFORMATION
  Report Type: Report from Study
  Country: IT (occurrence: IT)
  Receive Date: 20190405
  Receipt Date: 20200927
  Transmission Date: 20201102
  Serious: Yes (Other)
  Sender: FDA-Public Use
  Company Number: IT-ROCHE-2294496

PATIENT
  Age: 74 Year
  Sex: Female
  Weight: 66.5 kg

DRUGS (14)
  1. CISPLATIN. [Suspect]
     Active Substance: CISPLATIN
     Indication: NON-SMALL CELL LUNG CANCER
     Dosage: MOST RECENT DOSE OF CISPLATIN PRIOR TO AE ONSET: 06/MAR/2019
     Route: 042
     Dates: start: 20190306
  2. COTAREG [Concomitant]
     Active Substance: HYDROCHLOROTHIAZIDE\VALSARTAN
     Indication: HYPERTENSION
     Route: 048
     Dates: start: 201002
  3. SEQUACOR [Concomitant]
     Active Substance: BISOPROLOL
     Indication: EXTRASYSTOLES
     Route: 048
     Dates: start: 201002
  4. IMODIUM [Concomitant]
     Active Substance: LOPERAMIDE HYDROCHLORIDE
     Indication: DIARRHOEA
     Route: 048
     Dates: start: 20190308, end: 20190317
  5. CIPROXIN [Concomitant]
     Active Substance: CIPROFLOXACIN
     Indication: PROPHYLAXIS
     Route: 048
     Dates: start: 20190321, end: 20190323
  6. SOLDESAM [Concomitant]
     Active Substance: DEXAMETHASONE
     Route: 048
     Dates: start: 20190328
  7. FOLINGRAV [Concomitant]
     Route: 048
     Dates: start: 20190328
  8. LASIX [Concomitant]
     Active Substance: FUROSEMIDE
     Route: 048
     Dates: start: 20190328
  9. DOBETIN [Concomitant]
     Route: 030
     Dates: start: 20190328
  10. ATEZOLIZUMAB. [Suspect]
     Active Substance: ATEZOLIZUMAB
     Indication: NON-SMALL CELL LUNG CANCER
     Dosage: MOST RECENT DOSE OF ATEZOLIZUMAB/PLACEBO PRIOR TO AE ONSET: 28/MAR/2019
     Route: 041
     Dates: start: 20190306
  11. CRESTOR [Concomitant]
     Active Substance: ROSUVASTATIN CALCIUM
     Indication: DYSLIPIDAEMIA
     Route: 048
     Dates: start: 201002
  12. MOMENT (ITALY) [Concomitant]
     Indication: PAIN
     Route: 048
     Dates: end: 201903
  13. PEMETREXED. [Suspect]
     Active Substance: PEMETREXED
     Indication: NON-SMALL CELL LUNG CANCER
     Dosage: MOST RECENT DOSE OF PEMETREXED PRIOR TO AE ONSET: 06/MAR/2019
     Route: 042
     Dates: start: 20190306
  14. PLASIL [Concomitant]
     Active Substance: METOCLOPRAMIDE HYDROCHLORIDE
     Indication: NAUSEA
     Route: 048
     Dates: start: 20190308, end: 20190311

REACTIONS (1)
  - Anaphylactic reaction [Recovered/Resolved]

NARRATIVE: CASE EVENT DATE: 20190328
